FAERS Safety Report 24946480 (Version 1)
Quarter: 2025Q1

REPORT INFORMATION
  Report Type: Spontaneous
  Country: BE (occurrence: BE)
  Receive Date: 20250210
  Receipt Date: 20250210
  Transmission Date: 20250409
  Serious: Yes (Hospitalization, Other)
  Sender: BIOGEN
  Company Number: None

PATIENT
  Age: 33 Year
  Sex: Male
  Weight: 113 kg

DRUGS (1)
  1. TYSABRI [Suspect]
     Active Substance: NATALIZUMAB
     Indication: Relapsing-remitting multiple sclerosis
     Dosage: TREATMENT ONCE EVERY 5 WEEKS; TEMPORARILY PAUSED, BUT IT WILL RESUME IN FEBRUARY 2025
     Route: 050
     Dates: start: 20180206

REACTIONS (2)
  - Thyroid mass [Not Recovered/Not Resolved]
  - Papillary thyroid cancer [Not Recovered/Not Resolved]

NARRATIVE: CASE EVENT DATE: 20241127
